FAERS Safety Report 20067153 (Version 1)
Quarter: 2021Q4

REPORT INFORMATION
  Report Type: Spontaneous
  Country: IT (occurrence: IT)
  Receive Date: 20211115
  Receipt Date: 20211115
  Transmission Date: 20220304
  Serious: Yes (Hospitalization, Other)
  Sender: FDA-Public Use
  Company Number: IT-MINISAL02-805018

PATIENT
  Age: 67 Year
  Sex: Female
  Weight: 68 kg

DRUGS (3)
  1. LAMOTRIGINE [Suspect]
     Active Substance: LAMOTRIGINE
     Indication: Depression
     Dosage: 100 MILLIGRAM, ONCE A DAY
     Route: 048
     Dates: start: 20211007, end: 20211027
  2. AZITHROMYCIN [Concomitant]
     Active Substance: AZITHROMYCIN
     Indication: Oropharyngeal pain
     Dosage: UNK
     Route: 065
     Dates: start: 20211023, end: 20211024
  3. ACETAMINOPHEN [Concomitant]
     Active Substance: ACETAMINOPHEN
     Indication: Product used for unknown indication
     Dosage: UNK
     Route: 065
     Dates: start: 20211023, end: 20211024

REACTIONS (3)
  - Stevens-Johnson syndrome [Unknown]
  - Erythema [Unknown]
  - Pruritus [Unknown]

NARRATIVE: CASE EVENT DATE: 20211024
